FAERS Safety Report 22352071 (Version 1)
Quarter: 2023Q2

REPORT INFORMATION
  Report Type: Spontaneous
  Country: US (occurrence: US)
  Receive Date: 20230522
  Receipt Date: 20230522
  Transmission Date: 20230722
  Serious: No
  Sender: FDA-Public Use
  Company Number: US-PFIZER INC-PV202300087807

PATIENT
  Age: 5 Year
  Sex: Male

DRUGS (1)
  1. OXBRYTA [Suspect]
     Active Substance: VOXELOTOR
     Dosage: 600 MG, 1X/DAY [300MG FOR ORAL SUSPENSION 2 TABS ONCE DAILY]
     Route: 048
     Dates: start: 20230303

REACTIONS (1)
  - Weight decreased [Unknown]
